FAERS Safety Report 6458637-4 (Version None)
Quarter: 2009Q4

REPORT INFORMATION
  Report Type: 
  Country: None (occurrence: None)
  Receive Date: 20091127
  Receipt Date: 20091119
  Transmission Date: 20100525
  Serious: Yes (Other)
  Sender: FDA-Public Use
  Company Number: US-ASTRAZENECA-2006UW08835

PATIENT
  Age: 701 Month
  Sex: Male
  Weight: 90.3 kg

DRUGS (20)
  1. SEROQUEL [Suspect]
     Indication: BIPOLAR DISORDER
     Dosage: 25MG-600MG
     Route: 048
     Dates: start: 20020404
  2. SEROQUEL [Suspect]
     Indication: SLEEP DISORDER
     Dosage: 25MG-600MG
     Route: 048
     Dates: start: 20020404
  3. SEROQUEL [Suspect]
     Dosage: 25 MG TO 800 MG
     Route: 048
     Dates: start: 20020425, end: 20050523
  4. SEROQUEL [Suspect]
     Dosage: 25 MG TO 800 MG
     Route: 048
     Dates: start: 20020425, end: 20050523
  5. RISPERDAL [Suspect]
     Indication: BIPOLAR DISORDER
     Route: 048
     Dates: start: 20010201, end: 20020401
  6. RISPERDAL [Suspect]
     Dosage: 0.5 MG TO 4 MG
     Route: 048
     Dates: start: 20040401, end: 20040801
  7. WELLBUTRIN SR [Concomitant]
     Dates: start: 20020425
  8. WELLBUTRIN SR [Concomitant]
     Dates: start: 20020404
  9. ZOCOR [Concomitant]
     Dosage: 40 MG - 80 MG
     Route: 048
     Dates: start: 20040915
  10. TERAZOSIN HCL [Concomitant]
     Route: 048
     Dates: start: 20040915
  11. PAXIL [Concomitant]
     Route: 048
     Dates: start: 20040915
  12. LITHIUM CARBONATE [Concomitant]
     Dosage: 300 MG -900 MG
     Route: 048
     Dates: start: 20040519
  13. DEPAKOTE ER [Concomitant]
     Dosage: 500 MG - 1000 MG
     Dates: start: 20060613
  14. ZOLOFT [Concomitant]
     Dates: start: 20060613
  15. ABILIFY [Concomitant]
     Dates: start: 20080101
  16. LITHIUM [Concomitant]
  17. CLONAZEPAM [Concomitant]
     Route: 048
     Dates: start: 20040416
  18. VALPROIC ACID [Concomitant]
     Route: 048
     Dates: start: 20040317
  19. CELEXA [Concomitant]
     Dosage: 20-40MG
     Dates: start: 20020404
  20. HYTRIN [Concomitant]
     Indication: BENIGN PROSTATIC HYPERPLASIA

REACTIONS (13)
  - ANHEDONIA [None]
  - ANXIETY [None]
  - DIABETES MELLITUS [None]
  - DIABETIC FOOT [None]
  - DIABETIC NEUROPATHY [None]
  - DRUG HYPERSENSITIVITY [None]
  - ECONOMIC PROBLEM [None]
  - FALL [None]
  - NEUROPATHY PERIPHERAL [None]
  - PAIN [None]
  - PERIPHERAL SENSORY NEUROPATHY [None]
  - TYPE 2 DIABETES MELLITUS [None]
  - UNEVALUABLE EVENT [None]
